FAERS Safety Report 4664294-X (Version None)
Quarter: 2005Q2

REPORT INFORMATION
  Report Type: 
  Country: None (occurrence: None)
  Receive Date: 20050518
  Receipt Date: 20050512
  Transmission Date: 20051028
  Serious: Yes (Other)
  Sender: FDA-Public Use
  Company Number: PHNU2005DE01947

PATIENT
  Sex: Male

DRUGS (3)
  1. LEPONEX / CLOZARIL (CLOZAPINE) [Suspect]
     Indication: SLEEP DISORDER
     Dosage: UNK, UNK
     Route: 048
     Dates: start: 20040901
  2. SIFROL [Concomitant]
     Indication: PARKINSON'S DISEASE
  3. CIPRALEX [Concomitant]

REACTIONS (2)
  - BENIGN PROSTATIC HYPERPLASIA [None]
  - WEIGHT INCREASED [None]
